FAERS Safety Report 9785888 (Version 2)
Quarter: 2014Q1

REPORT INFORMATION
  Report Type: Spontaneous
  Country: FR (occurrence: FR)
  Receive Date: 20131227
  Receipt Date: 20140109
  Transmission Date: 20141002
  Serious: Yes (Hospitalization)
  Sender: FDA-Public Use
  Company Number: FR-JNJFOC-20131209516

PATIENT
  Age: 81 Year
  Sex: Female

DRUGS (9)
  1. HALDOL [Suspect]
     Indication: PRODUCT USED FOR UNKNOWN INDICATION
     Route: 065
     Dates: start: 201303, end: 20130309
  2. LOXAPAC [Suspect]
     Indication: PRODUCT USED FOR UNKNOWN INDICATION
     Route: 065
     Dates: start: 201303, end: 20130309
  3. PARACETAMOL [Concomitant]
     Dosage: LONG TERM
     Route: 065
  4. EBIXA [Concomitant]
     Dosage: LONG TERM
     Route: 065
  5. IMOVANE [Concomitant]
     Dosage: AT BED TIME
     Route: 065
  6. KARDEGIC [Concomitant]
     Dosage: LONG TERM
     Route: 065
  7. EFFEXOR [Concomitant]
     Route: 048
     Dates: end: 201303
  8. NORSET [Concomitant]
     Route: 048
     Dates: end: 201303
  9. SERESTA [Concomitant]
     Dosage: 10 MG IN MORNING + 10 MG MIDDAY + 25 MG IN EVENING + 25 MG TAKEN ROUTINELY DAY OR NIGHT
     Route: 065
     Dates: end: 201303

REACTIONS (5)
  - Pyrexia [Recovered/Resolved]
  - Extrapyramidal disorder [Recovered/Resolved]
  - Neuroleptic malignant syndrome [Unknown]
  - Urinary tract infection [Unknown]
  - Confusional state [Recovered/Resolved]
